FAERS Safety Report 5452115-7 (Version None)
Quarter: 2007Q3

REPORT INFORMATION
  Report Type: 
  Country: None (occurrence: None)
  Receive Date: 20070912
  Receipt Date: 20070828
  Transmission Date: 20080115
  Serious: Yes (Death)
  Sender: FDA-Public Use
  Company Number: PERC20070051

PATIENT
  Age: 46 Year
  Sex: Female

DRUGS (5)
  1. PERCOCET [Suspect]
     Indication: PAIN
     Dates: end: 20021001
  2. OXYCONTIN [Suspect]
     Indication: PAIN
     Dates: end: 20021001
  3. SOMA [Suspect]
     Indication: PAIN
     Dates: end: 20021001
  4. XANAX [Suspect]
     Indication: PAIN
     Dates: end: 20021001
  5. DIAZEPAM [Suspect]
     Indication: PAIN
     Dates: end: 20021001

REACTIONS (3)
  - FALL [None]
  - LOSS OF CONSCIOUSNESS [None]
  - MULTIPLE DRUG OVERDOSE [None]
